FAERS Safety Report 11525825 (Version 6)
Quarter: 2016Q1

REPORT INFORMATION
  Report Type: Report from Study
  Country: US (occurrence: US)
  Receive Date: 20150918
  Receipt Date: 20160210
  Transmission Date: 20160525
  Serious: No
  Sender: FDA-Public Use
  Company Number: PHEH2015US018101

PATIENT
  Sex: Female
  Weight: 131 kg

DRUGS (1)
  1. GILENYA [Suspect]
     Active Substance: FINGOLIMOD HYDROCHLORIDE
     Indication: MULTIPLE SCLEROSIS
     Dosage: 0.5 MG, QD
     Route: 048
     Dates: start: 20150730

REACTIONS (11)
  - Aptyalism [Unknown]
  - Oral pain [Unknown]
  - Visual impairment [Unknown]
  - Dysphagia [Not Recovered/Not Resolved]
  - Memory impairment [Unknown]
  - Tooth disorder [Unknown]
  - Disturbance in attention [Unknown]
  - Glossodynia [Not Recovered/Not Resolved]
  - Dry mouth [Recovering/Resolving]
  - Burn oral cavity [Unknown]
  - Weight decreased [Unknown]
